FAERS Safety Report 9121700 (Version 2)
Quarter: 2013Q2

REPORT INFORMATION
  Report Type: Spontaneous
  Country: US (occurrence: US)
  Receive Date: 20130227
  Receipt Date: 20130508
  Transmission Date: 20140414
  Serious: No
  Sender: FDA-Public Use
  Company Number: US-BIOGENIDEC-2013BI016559

PATIENT
  Age: 59 Year
  Sex: Female

DRUGS (1)
  1. TYSABRI [Suspect]
     Indication: MULTIPLE SCLEROSIS
     Route: 042
     Dates: start: 20080911

REACTIONS (6)
  - Memory impairment [Not Recovered/Not Resolved]
  - Dysuria [Unknown]
  - Urine abnormality [Unknown]
  - Pollakiuria [Unknown]
  - Urinary tract infection [Unknown]
  - Cystitis [Not Recovered/Not Resolved]
